FAERS Safety Report 11845085 (Version 3)
Quarter: 2016Q1

REPORT INFORMATION
  Report Type: Spontaneous
  Country: US (occurrence: US)
  Receive Date: 20151217
  Receipt Date: 20160209
  Transmission Date: 20160526
  Serious: Yes (Hospitalization, Other)
  Sender: FDA-Public Use
  Company Number: PHEH2015US025723

PATIENT
  Sex: Female

DRUGS (9)
  1. VINCAMINE [Suspect]
     Active Substance: VINCAMINE
     Indication: SEIZURE
     Dosage: UNK
     Route: 065
  2. SEROQUEL [Suspect]
     Active Substance: QUETIAPINE FUMARATE
     Indication: SEIZURE
     Dosage: UNK
     Route: 065
     Dates: start: 2009
  3. DEPAKOTE [Suspect]
     Active Substance: DIVALPROEX SODIUM
     Indication: SEIZURE
     Dosage: UNK, LOW DOSE
     Route: 065
  4. LAMICTAL [Suspect]
     Active Substance: LAMOTRIGINE
     Indication: SEIZURE
     Dosage: 800 MG, UNK
     Route: 048
     Dates: start: 2010
  5. LAMICTAL [Suspect]
     Active Substance: LAMOTRIGINE
     Dosage: 1200 MG, UNK
     Route: 048
     Dates: end: 2011
  6. THORAZINE [Suspect]
     Active Substance: CHLORPROMAZINE
     Indication: SEIZURE
     Dosage: UNK
     Route: 065
     Dates: start: 2009
  7. LAMICTAL [Suspect]
     Active Substance: LAMOTRIGINE
     Indication: PRODUCT USED FOR UNKNOWN INDICATION
     Dosage: UNK
     Route: 065
     Dates: start: 2010
  8. VIMPAT [Suspect]
     Active Substance: LACOSAMIDE
     Indication: SEIZURE
     Dosage: UNK
     Route: 065
  9. TRILEPTAL [Suspect]
     Active Substance: OXCARBAZEPINE
     Indication: SEIZURE
     Route: 065

REACTIONS (33)
  - Gait disturbance [Unknown]
  - Irritability [Unknown]
  - Agitation [Unknown]
  - Ovarian cancer [Unknown]
  - Cerebral disorder [Unknown]
  - Balance disorder [Unknown]
  - Increased tendency to bruise [Unknown]
  - Bipolar disorder [Unknown]
  - Haemorrhage [Unknown]
  - Contusion [Unknown]
  - Constipation [Unknown]
  - Confusional state [Unknown]
  - Drug ineffective [Unknown]
  - Logorrhoea [Unknown]
  - Diplopia [Unknown]
  - Mania [Unknown]
  - Joint injury [Unknown]
  - Loss of consciousness [Unknown]
  - Coordination abnormal [Unknown]
  - Pallor [Unknown]
  - Disturbance in attention [Unknown]
  - Meniscus injury [Unknown]
  - Insomnia [Unknown]
  - Dizziness [Unknown]
  - Abdominal discomfort [Unknown]
  - Tremor [Unknown]
  - Seizure [Not Recovered/Not Resolved]
  - Fatigue [Unknown]
  - Cognitive disorder [Unknown]
  - Depression [Unknown]
  - Muscular weakness [Unknown]
  - Fall [Unknown]
  - Nausea [Unknown]
